FAERS Safety Report 14105320 (Version 2)
Quarter: 2017Q4

REPORT INFORMATION
  Report Type: Spontaneous
  Country: US (occurrence: US)
  Receive Date: 20171018
  Receipt Date: 20171023
  Transmission Date: 20180321
  Serious: No
  Sender: FDA-Public Use
  Company Number: US-ALLERGAN-1755903US

PATIENT
  Age: 27 Year
  Sex: Female

DRUGS (1)
  1. LILETTA [Suspect]
     Active Substance: LEVONORGESTREL
     Indication: PRODUCT USED FOR UNKNOWN INDICATION
     Dosage: 52 MG
     Route: 015
     Dates: start: 20170801, end: 20170927

REACTIONS (3)
  - Device expulsion [Unknown]
  - Vulvovaginal injury [Unknown]
  - Dyspareunia [Unknown]

NARRATIVE: CASE EVENT DATE: 20170927
